FAERS Safety Report 7706460-2 (Version None)
Quarter: 2011Q3

REPORT INFORMATION
  Report Type: 
  Country: None (occurrence: None)
  Receive Date: 20110824
  Receipt Date: 20110816
  Transmission Date: 20111222
  Serious: Yes (Other)
  Sender: FDA-Public Use
  Company Number: CA-JNJFOC-20110808103

PATIENT
  Sex: Male
  Weight: 86.4 kg

DRUGS (1)
  1. REMICADE [Suspect]
     Indication: RHEUMATOID ARTHRITIS
     Dosage: DOSE STRENGTH 300MG
     Route: 042
     Dates: start: 20081201

REACTIONS (1)
  - NEOPLASM MALIGNANT [None]
